FAERS Safety Report 8583003-5 (Version None)
Quarter: 2012Q3

REPORT INFORMATION
  Report Type: 
  Country: None (occurrence: None)
  Receive Date: 20120727
  Receipt Date: 20120713
  Transmission Date: 20120928
  Serious: Yes (Other)
  Sender: FDA-Public Use
  Company Number: 1350660

PATIENT
  Sex: Male

DRUGS (5)
  1. PREDNISONE TAB [Suspect]
     Indication: B-CELL LYMPHOMA
  2. DOXORUBICIN HYDROCHLORIDE [Suspect]
     Indication: B-CELL LYMPHOMA
  3. CYCLOPHOSPHAMIDE [Suspect]
     Indication: B-CELL LYMPHOMA
  4. VINCRISTINE SULFATE [Suspect]
     Indication: B-CELL LYMPHOMA
  5. (MABTHERA) [Suspect]
     Indication: B-CELL LYMPHOMA

REACTIONS (2)
  - HAEMATOTOXICITY [None]
  - NEUTROPENIA [None]
